FAERS Safety Report 9571646 (Version 1)
Quarter: 2013Q4

REPORT INFORMATION
  Report Type: Spontaneous
  Country: US (occurrence: US)
  Receive Date: 20131001
  Receipt Date: 20131001
  Transmission Date: 20140711
  Serious: No
  Sender: FDA-Public Use
  Company Number: US-BIOGENIDEC-2013BI065267

PATIENT
  Age: 46 Year
  Sex: Male
  Weight: 102 kg

DRUGS (2)
  1. TECFIDERA [Suspect]
     Indication: MULTIPLE SCLEROSIS
     Dates: start: 20130629
  2. IBUPROFEN [Concomitant]

REACTIONS (3)
  - Flushing [Recovered/Resolved]
  - Abdominal pain [Not Recovered/Not Resolved]
  - Abdominal pain upper [Unknown]
